FAERS Safety Report 5654377-X (Version None)
Quarter: 2008Q1

REPORT INFORMATION
  Report Type: 
  Country: None (occurrence: None)
  Receive Date: 20080305
  Receipt Date: 20080220
  Transmission Date: 20080703
  Serious: Yes (Hospitalization)
  Sender: FDA-Public Use
  Company Number: 2008BI004205

PATIENT
  Age: 57 Year
  Sex: Female
  Weight: 52.1637 kg

DRUGS (1)
  1. AVONEX [Suspect]
     Indication: MULTIPLE SCLEROSIS
     Dosage: 30 UG;QW;IM
     Route: 030
     Dates: start: 19970301

REACTIONS (6)
  - CONDITION AGGRAVATED [None]
  - DELUSION [None]
  - KIDNEY INFECTION [None]
  - MULTIPLE SCLEROSIS [None]
  - URINARY TRACT INFECTION [None]
  - WEIGHT DECREASED [None]
